FAERS Safety Report 7054495-8 (Version None)
Quarter: 2010Q4

REPORT INFORMATION
  Report Type: 
  Country: None (occurrence: None)
  Receive Date: 20101020
  Receipt Date: 20101013
  Transmission Date: 20110411
  Serious: Yes (Other)
  Sender: FDA-Public Use
  Company Number: CL-PFIZER INC-2010111869

PATIENT
  Age: 17 Year
  Sex: Female

DRUGS (1)
  1. MEDROL [Suspect]
     Indication: ASTHMA
     Dosage: 16 MG, 1X/DAY
     Route: 048
     Dates: start: 20100902

REACTIONS (1)
  - EYE PAIN [None]
